FAERS Safety Report 5876137-7 (Version None)
Quarter: 2008Q3

REPORT INFORMATION
  Report Type: 
  Country: None (occurrence: None)
  Receive Date: 20080910
  Receipt Date: 20080903
  Transmission Date: 20090109
  Serious: Yes (Hospitalization, Other)
  Sender: FDA-Public Use
  Company Number: RO-ROCHE-584539

PATIENT
  Age: 48 Year
  Sex: Male

DRUGS (2)
  1. PEGASYS [Suspect]
     Dosage: FORM: VIALS
     Route: 058
     Dates: start: 20080211, end: 20080721
  2. COPEGUS [Concomitant]
     Route: 048
     Dates: start: 20080211, end: 20080721

REACTIONS (3)
  - ADRENAL CARCINOMA [None]
  - ANAEMIA [None]
  - METASTASES TO THYROID [None]
